FAERS Safety Report 9177335 (Version 1)
Quarter: 2013Q1

REPORT INFORMATION
  Report Type: Spontaneous
  Country: US (occurrence: US)
  Receive Date: 20130321
  Receipt Date: 20130321
  Transmission Date: 20140127
  Serious: Yes (Other)
  Sender: FDA-Public Use
  Company Number: US-AMGEN-USASP2013017342

PATIENT
  Age: 84 Year
  Sex: Female

DRUGS (1)
  1. PROLIA [Suspect]
     Indication: PRODUCT USED FOR UNKNOWN INDICATION
     Dosage: UNK
     Dates: start: 20130308

REACTIONS (6)
  - Eye disorder [Unknown]
  - Chills [Unknown]
  - Malaise [Unknown]
  - Feeling cold [Unknown]
  - Pruritus [Unknown]
  - Arthralgia [Unknown]
